FAERS Safety Report 24956648 (Version 1)
Quarter: 2025Q1

REPORT INFORMATION
  Report Type: Spontaneous
  Country: CA (occurrence: CA)
  Receive Date: 20250211
  Receipt Date: 20250211
  Transmission Date: 20250408
  Serious: Yes (Other)
  Sender: CSL BEHRING
  Company Number: CA-BEH-2025194661

PATIENT
  Age: 77 Year
  Sex: Female

DRUGS (4)
  1. HUMAN IMMUNOGLOBULIN G [Suspect]
     Active Substance: HUMAN IMMUNOGLOBULIN G
     Indication: Primary immunodeficiency syndrome
     Dosage: 5 G, QW SOLUTION FOR INFUSION
     Route: 065
  2. HUMAN IMMUNOGLOBULIN G [Suspect]
     Active Substance: HUMAN IMMUNOGLOBULIN G
     Dosage: 4 G, QW
     Route: 065
  3. BENZYDAMINE [Concomitant]
     Active Substance: BENZYDAMINE
     Indication: Oral pain
     Route: 065
  4. BENZYDAMINE [Concomitant]
     Active Substance: BENZYDAMINE
     Indication: Dry mouth

REACTIONS (5)
  - Blood immunoglobulin G decreased [Not Recovered/Not Resolved]
  - Dry mouth [Not Recovered/Not Resolved]
  - Lower respiratory tract infection [Not Recovered/Not Resolved]
  - Oral pain [Not Recovered/Not Resolved]
  - Secretion discharge [Not Recovered/Not Resolved]
